FAERS Safety Report 12842028 (Version 1)
Quarter: 2016Q4

REPORT INFORMATION
  Report Type: Spontaneous
  Country: IE (occurrence: IE)
  Receive Date: 20161012
  Receipt Date: 20161012
  Transmission Date: 20170207
  Serious: Yes (Other)
  Sender: FDA-Public Use
  Company Number: IE-ROCHE-1840694

PATIENT
  Sex: Male

DRUGS (1)
  1. VALIUM [Suspect]
     Active Substance: DIAZEPAM
     Indication: MENIERE^S DISEASE
     Route: 065
     Dates: start: 2001

REACTIONS (4)
  - Suicidal ideation [Unknown]
  - Off label use [Unknown]
  - Drug withdrawal syndrome [Unknown]
  - Pain in extremity [Unknown]
